FAERS Safety Report 4375852-4 (Version None)
Quarter: 2004Q2

REPORT INFORMATION
  Report Type: 
  Country: None (occurrence: None)
  Receive Date: 20040611
  Receipt Date: 20031203
  Transmission Date: 20050107
  Serious: Yes (Hospitalization)
  Sender: FDA-Public Use
  Company Number: GB-BRISTOL-MYERS SQUIBB COMPANY-12448395

PATIENT
  Age: 52 Year

DRUGS (3)
  1. TAXOL [Suspect]
     Indication: BREAST CANCER
     Dates: start: 20030818, end: 20030818
  2. TRASTUZUMAB [Suspect]
     Indication: BREAST CANCER
     Dates: start: 20030819, end: 20030819
  3. VALPROIC ACID [Concomitant]
     Route: 048

REACTIONS (1)
  - HYPERKALAEMIA [None]
